FAERS Safety Report 4580078-5 (Version None)
Quarter: 2005Q1

REPORT INFORMATION
  Report Type: 
  Country: None (occurrence: None)
  Receive Date: 20050214
  Receipt Date: 20050131
  Transmission Date: 20050727
  Serious: Yes (Death, Hospitalization)
  Sender: FDA-Public Use
  Company Number: FR-JNJFOC-20040304860

PATIENT
  Age: 64 Year
  Sex: Male

DRUGS (16)
  1. TOPALGIC [Suspect]
     Indication: DRUG USE FOR UNKNOWN INDICATION
     Route: 049
  2. DI-ANTALVIC [Suspect]
     Route: 049
  3. DI-ANTALVIC [Suspect]
     Indication: DRUG USE FOR UNKNOWN INDICATION
     Route: 049
  4. CALCIPARINE [Suspect]
     Route: 058
  5. CALCIPARINE [Suspect]
     Indication: DRUG USE FOR UNKNOWN INDICATION
     Route: 058
  6. PREVISCAN [Suspect]
     Route: 049
  7. PREVISCAN [Suspect]
     Indication: DRUG USE FOR UNKNOWN INDICATION
     Route: 049
  8. LASILIX [Concomitant]
     Route: 049
  9. ODRIK [Concomitant]
     Route: 049
  10. DIAMOX [Concomitant]
  11. CORDARONE [Concomitant]
  12. KALEORID [Concomitant]
     Route: 049
  13. BRICANYL [Concomitant]
     Route: 065
  14. ATROVENT [Concomitant]
     Route: 065
  15. OMEPRAZOLE [Concomitant]
  16. SKENAN [Concomitant]
     Route: 065

REACTIONS (6)
  - DEATH [None]
  - DERMATITIS BULLOUS [None]
  - INJECTION SITE HAEMORRHAGE [None]
  - PURPURA [None]
  - RASH PAPULAR [None]
  - SKIN NECROSIS [None]
